FAERS Safety Report 17564530 (Version 3)
Quarter: 2020Q4

REPORT INFORMATION
  Report Type: Report from Study
  Country: GB (occurrence: GB)
  Receive Date: 20200320
  Receipt Date: 20201019
  Transmission Date: 20210113
  Serious: Yes (Hospitalization)
  Sender: FDA-Public Use
  Company Number: GB-ROCHE-2567918

PATIENT
  Age: 37 Year
  Sex: Female
  Weight: 74.6 kg

DRUGS (5)
  1. BLINDED ATEZOLIZUMAB [Suspect]
     Active Substance: ATEZOLIZUMAB
     Indication: OVARIAN CANCER
     Dosage: ON 28/FEB/2020, SHE RECEIVED MOST RECENT DOSE OF ATEZOLIZUMAB
     Route: 042
     Dates: start: 20200228
  2. LEVOFLOXACIN. [Concomitant]
     Active Substance: LEVOFLOXACIN
     Route: 042
     Dates: start: 20200317, end: 20200322
  3. TAZOCIN [Concomitant]
     Active Substance: PIPERACILLIN SODIUM\TAZOBACTAM SODIUM
     Route: 042
     Dates: start: 20200318, end: 20200322
  4. BEVACIZUMAB. [Suspect]
     Active Substance: BEVACIZUMAB
     Indication: OVARIAN CANCER
     Dosage: ON 28/FEB/2020, SHE RECEIVED MOST RECENT DOSE OF BEVACIZUMAB
     Route: 042
     Dates: start: 20200228
  5. CEFUROXIME. [Concomitant]
     Active Substance: CEFUROXIME
     Dates: start: 20200313, end: 20200322

REACTIONS (5)
  - Sepsis [Recovered/Resolved]
  - Vomiting [Unknown]
  - Pneumonia [Recovered/Resolved]
  - Nausea [Unknown]
  - Pyrexia [Unknown]

NARRATIVE: CASE EVENT DATE: 20200306
